FAERS Safety Report 8917363 (Version 1)
Quarter: 2012Q4

REPORT INFORMATION
  Report Type: 
  Country: ES (occurrence: ES)
  Receive Date: 20121119
  Receipt Date: 20121119
  Transmission Date: 20130627
  Serious: Yes (Hospitalization)
  Sender: FDA-Public Use
  Company Number: ES-B.I. PHARMACEUTICALS,INC./RIDGEFIELD-2012-ES-00442ES

PATIENT
  Age: 79 Year
  Sex: Male

DRUGS (5)
  1. PRADAXA [Suspect]
     Indication: ATRIAL FIBRILLATION
     Route: 048
     Dates: end: 20120529
  2. EUCREAS [Suspect]
     Indication: DIABETES MELLITUS
     Dosage: Strength: 50mg/850mg; Daily Dose: 2DF
     Route: 048
     Dates: end: 20120529
  3. SINEMET PLUS RETARD 25/100 MG COMPRIMIDOS DE LIBERACI?N RETARDADA [Suspect]
     Indication: PARKINSON^S DISEASE
     Dosage: Strength: 25/100 mg; Daily Dose: 3DF
     Route: 048
     Dates: start: 20120515
  4. AMLODIPINE [Concomitant]
     Indication: HYPERTENSION
     Dosage: 5 mg
     Route: 048
  5. ESCITALOPRAM [Concomitant]
     Indication: RESPIRATORY DEPRESSION
     Dosage: 20 mg
     Route: 048

REACTIONS (3)
  - Dyspnoea [Recovered/Resolved]
  - Presyncope [Recovered/Resolved]
  - Ischaemic cardiomyopathy [Recovered/Resolved]
